FAERS Safety Report 8476063 (Version 3)
Quarter: 2013Q3

REPORT INFORMATION
  Report Type: Spontaneous
  Country: NZ (occurrence: NZ)
  Receive Date: 20120326
  Receipt Date: 20130730
  Transmission Date: 20140515
  Serious: Yes (Hospitalization, Other)
  Sender: FDA-Public Use
  Company Number: NZ-B.I. PHARMACEUTICALS,INC./RIDGEFIELD-2012-AU-00634AU

PATIENT
  Age: 79 Year
  Sex: Male
  Weight: 93.8 kg

DRUGS (3)
  1. PRADAXA [Suspect]
     Indication: CEREBROVASCULAR ACCIDENT PROPHYLAXIS
     Dosage: 300 MG
     Dates: start: 201112
  2. PRADAXA [Suspect]
     Indication: ATRIAL FIBRILLATION
  3. FRUSEMIDE [Concomitant]
     Indication: ISCHAEMIC CARDIOMYOPATHY

REACTIONS (9)
  - Extradural abscess [Recovered/Resolved]
  - Spinal cord compression [Recovered/Resolved]
  - Malaise [Recovered/Resolved]
  - Back pain [Recovered/Resolved]
  - Neurological examination abnormal [Recovered/Resolved]
  - Renal failure acute [Recovered/Resolved]
  - Orthopnoea [Recovered/Resolved]
  - Oedema peripheral [Unknown]
  - Pulmonary oedema [Unknown]
